FAERS Safety Report 7522068-6 (Version None)
Quarter: 2011Q2

REPORT INFORMATION
  Report Type: 
  Country: None (occurrence: None)
  Receive Date: 20110603
  Receipt Date: 20110527
  Transmission Date: 20111010
  Serious: Yes (Other)
  Sender: FDA-Public Use
  Company Number: US-SANOFI-AVENTIS-2011SA034391

PATIENT
  Age: 63 Year
  Sex: Male

DRUGS (2)
  1. AMBIEN [Suspect]
     Indication: INSOMNIA
     Route: 048
  2. AMBIEN [Suspect]
     Route: 048
     Dates: start: 20110509, end: 20110515

REACTIONS (3)
  - SLEEP APNOEA SYNDROME [None]
  - SOMNOLENCE [None]
  - DRUG ADMINISTRATION ERROR [None]
